FAERS Safety Report 24273846 (Version 10)
Quarter: 2025Q4

REPORT INFORMATION
  Report Type: Spontaneous
  Country: CA (occurrence: CA)
  Receive Date: 20240902
  Receipt Date: 20251114
  Transmission Date: 20260117
  Serious: Yes (Congenital Anomaly, Other)
  Sender: PFIZER
  Company Number: CA-002147023-NVSC2024CA168989

PATIENT
  Sex: Female

DRUGS (184)
  1. ENBREL [Suspect]
     Active Substance: ETANERCEPT
     Dosage: 50 MG, QD
     Route: 064
  2. ENBREL [Suspect]
     Active Substance: ETANERCEPT
     Dosage: 40 MG
     Route: 064
  3. ENBREL [Suspect]
     Active Substance: ETANERCEPT
     Dosage: UNK
     Route: 064
  4. ENBREL [Suspect]
     Active Substance: ETANERCEPT
     Dosage: UNK
     Route: 064
  5. ENBREL [Suspect]
     Active Substance: ETANERCEPT
     Dosage: 10 MG, QD
     Route: 064
  6. ENBREL [Suspect]
     Active Substance: ETANERCEPT
     Dosage: 50 MG, WEEKLY
     Route: 064
  7. ADALIMUMAB [Suspect]
     Active Substance: ADALIMUMAB
     Dosage: UNK
     Route: 064
  8. ADALIMUMAB [Suspect]
     Active Substance: ADALIMUMAB
     Dosage: 40 MG
     Route: 064
  9. ADALIMUMAB [Suspect]
     Active Substance: ADALIMUMAB
     Dosage: 40 MG, CYCLIC (EVERY 2 WEEKS)
     Route: 064
  10. INFLIXIMAB [Suspect]
     Active Substance: INFLIXIMAB
     Dosage: UNK
     Route: 064
  11. INFLIXIMAB [Suspect]
     Active Substance: INFLIXIMAB
     Dosage: UNK
     Route: 064
  12. HYDROCORTISONE [Suspect]
     Active Substance: HYDROCORTISONE
     Dosage: UNK
     Route: 064
  13. METHOTREXATE SODIUM [Suspect]
     Active Substance: METHOTREXATE SODIUM
     Dosage: UNK (MATERNAL EXPOSURE DURING PREGNANCY: 15 MG QW)
     Route: 064
  14. METHOTREXATE SODIUM [Suspect]
     Active Substance: METHOTREXATE SODIUM
     Dosage: UNK (MATERNAL EXPOSURE DURING PREGNANCY: 25 MG QW)
     Route: 064
  15. METHOTREXATE SODIUM [Suspect]
     Active Substance: METHOTREXATE SODIUM
     Dosage: UNK (MATERNAL EXPOSURE DURING PREGNANCY: 1 MG QW)
     Route: 064
  16. METHOTREXATE SODIUM [Suspect]
     Active Substance: METHOTREXATE SODIUM
     Dosage: UNK (MATERNAL EXPOSURE DURING PREGNANCY: UNK QW)
     Route: 064
  17. METHYLPREDNISOLONE [Suspect]
     Active Substance: METHYLPREDNISOLONE
     Dosage: UNK
     Route: 064
  18. METHYLPREDNISOLONE SODIUM SUCCINATE [Suspect]
     Active Substance: METHYLPREDNISOLONE SODIUM SUCCINATE
     Dosage: UNK
     Route: 064
  19. SULFASALAZINE [Suspect]
     Active Substance: SULFASALAZINE
     Dosage: UNK (MATERNAL EXPOSURE DURING PREGNANCY: 1000 MG)
     Route: 064
  20. SULFASALAZINE [Suspect]
     Active Substance: SULFASALAZINE
     Dosage: UNK (MATERNAL EXPOSURE DURING PREGNANCY: 1 G QD)
     Route: 064
  21. SULFASALAZINE [Suspect]
     Active Substance: SULFASALAZINE
     Dosage: UNK (MATERNAL EXPOSURE DURING PREGNANCY: 100 MG)
     Route: 064
  22. SULFASALAZINE [Suspect]
     Active Substance: SULFASALAZINE
     Dosage: UNK (MATERNAL EXPOSURE DURING PREGNANCY: 1 G QD)
     Route: 064
  23. SULFASALAZINE [Suspect]
     Active Substance: SULFASALAZINE
     Dosage: UNK (MATERNAL EXPOSURE DURING PREGNANCY: 1 DOSAGE FORM)
     Route: 064
  24. SULFASALAZINE [Suspect]
     Active Substance: SULFASALAZINE
     Dosage: UNK (MATERNAL EXPOSURE DURING PREGNANCY: 500 MG)
     Route: 064
  25. SULFASALAZINE [Suspect]
     Active Substance: SULFASALAZINE
     Dosage: UNK (MATERNAL EXPOSURE DURING PREGNANCY: 2 MG QD)
     Route: 064
  26. XELJANZ [Suspect]
     Active Substance: TOFACITINIB CITRATE
     Dosage: 10 MG, QD
     Route: 064
  27. XELJANZ [Suspect]
     Active Substance: TOFACITINIB CITRATE
     Dosage: 20 MG, QD
     Route: 064
  28. RITUXIMAB [Suspect]
     Active Substance: RITUXIMAB
     Dosage: 2000 MG, QD
     Route: 064
  29. RITUXIMAB [Suspect]
     Active Substance: RITUXIMAB
     Dosage: UNK
     Route: 064
  30. RITUXIMAB [Suspect]
     Active Substance: RITUXIMAB
     Dosage: 365 MG, QD
     Route: 064
  31. RITUXIMAB [Suspect]
     Active Substance: RITUXIMAB
     Dosage: UNK
     Route: 064
  32. RITUXIMAB [Suspect]
     Active Substance: RITUXIMAB
     Dosage: 1000 MG, QD
     Route: 064
  33. RITUXIMAB [Suspect]
     Active Substance: RITUXIMAB
     Dosage: UNK
     Route: 064
  34. RITUXIMAB [Suspect]
     Active Substance: RITUXIMAB
     Dosage: UNK
     Route: 064
  35. AIMOVIG [Suspect]
     Active Substance: ERENUMAB-AOOE
     Dosage: UNK, MATERNAL EXPOSURE DURING PREGNANCY: UNK
     Route: 064
  36. COSENTYX [Suspect]
     Active Substance: SECUKINUMAB
     Dosage: UNK
     Route: 064
  37. DICLOFENAC POTASSIUM [Suspect]
     Active Substance: DICLOFENAC POTASSIUM
     Dosage: UNK
     Route: 064
  38. DICLOFENAC SODIUM [Suspect]
     Active Substance: DICLOFENAC SODIUM
     Dosage: 50 MG
     Route: 064
  39. DICLOFENAC [Suspect]
     Active Substance: DICLOFENAC
     Dosage: UNK
     Route: 064
  40. ACETAMINOPHEN [Suspect]
     Active Substance: ACETAMINOPHEN
     Dosage: UNK
     Route: 064
  41. ACETAMINOPHEN AND CODEINE [Suspect]
     Active Substance: ACETAMINOPHEN\CODEINE PHOSPHATE
     Dosage: UNK
     Route: 064
  42. ACTEMRA [Suspect]
     Active Substance: TOCILIZUMAB
     Dosage: UNK (MATERNAL EXPOSURE DURING PREGNANCY: 728 MG)
     Route: 064
  43. ACTEMRA [Suspect]
     Active Substance: TOCILIZUMAB
     Dosage: UNK (MATERNAL EXPOSURE DURING PREGNANCY: 2912 MG)
     Route: 064
  44. ACTEMRA [Suspect]
     Active Substance: TOCILIZUMAB
     Dosage: UNK (MATERNAL EXPOSURE DURING PREGNANCY: 8 MG/KG)
     Route: 064
  45. ACTEMRA [Suspect]
     Active Substance: TOCILIZUMAB
     Dosage: UNK (MATERNAL EXPOSURE DURING PREGNANCY: UNK)
     Route: 064
  46. ACTEMRA [Suspect]
     Active Substance: TOCILIZUMAB
     Dosage: UNK (MATERNAL EXPOSURE DURING PREGNANCY: UNK)
     Route: 064
  47. ACTEMRA [Suspect]
     Active Substance: TOCILIZUMAB
     Dosage: UNK (MATERNAL EXPOSURE DURING PREGNANCY: 8 MG/KG)
     Route: 064
  48. ACTEMRA [Suspect]
     Active Substance: TOCILIZUMAB
     Dosage: UNK (MATERNAL EXPOSURE DURING PREGNANCY: 160 MG)
     Route: 064
  49. ACTEMRA [Suspect]
     Active Substance: TOCILIZUMAB
     Dosage: UNK (MATERNAL EXPOSURE DURING PREGNANCY: 162 MG)
     Route: 064
  50. ACTEMRA [Suspect]
     Active Substance: TOCILIZUMAB
     Dosage: UNK (MATERNAL EXPOSURE DURING PREGNANCY: 20 MG)
     Route: 064
  51. ACTEMRA [Suspect]
     Active Substance: TOCILIZUMAB
     Dosage: UNK (MATERNAL EXPOSURE DURING PREGNANCY: UNK)
     Route: 064
  52. ALENDRONATE SODIUM [Suspect]
     Active Substance: ALENDRONATE SODIUM
     Dosage: UNK (MATERNAL EXPOSURE DURING PREGNANCY: UNK)
     Route: 064
  53. ALENDRONIC ACID [Suspect]
     Active Substance: ALENDRONIC ACID
     Dosage: UNK
     Route: 064
  54. LEFLUNOMIDE [Suspect]
     Active Substance: LEFLUNOMIDE
     Dosage: UNK (MATERNAL EXPOSURE DURING PREGNANCY: 10 MG QD)
     Route: 064
  55. LEFLUNOMIDE [Suspect]
     Active Substance: LEFLUNOMIDE
     Dosage: UNK (MATERNAL EXPOSURE DURING PREGNANCY: 20 MG QD)
     Route: 064
  56. LEFLUNOMIDE [Suspect]
     Active Substance: LEFLUNOMIDE
     Dosage: UNK (MATERNAL EXPOSURE DURING PREGNANCY: UNK)
     Route: 064
  57. LEFLUNOMIDE [Suspect]
     Active Substance: LEFLUNOMIDE
     Dosage: UNK (MATERNAL EXPOSURE DURING PREGNANCY: 40 MG)
     Route: 064
  58. LEFLUNOMIDE [Suspect]
     Active Substance: LEFLUNOMIDE
     Dosage: UNK (MATERNAL EXPOSURE DURING PREGNANCY: 5 MG)
     Route: 064
  59. LEFLUNOMIDE [Suspect]
     Active Substance: LEFLUNOMIDE
     Dosage: UNK (MATERNAL EXPOSURE DURING PREGNANCY: 1 MG)
     Route: 064
  60. LEFLUNOMIDE [Suspect]
     Active Substance: LEFLUNOMIDE
     Dosage: UNK (MATERNAL EXPOSURE DURING PREGNANCY: 10 MG)
     Route: 064
  61. LEFLUNOMIDE [Suspect]
     Active Substance: LEFLUNOMIDE
     Dosage: UNK (MATERNAL EXPOSURE DURING PREGNANCY: 20 MG, QD)
     Route: 064
  62. LEFLUNOMIDE [Suspect]
     Active Substance: LEFLUNOMIDE
     Dosage: UNK (MATERNAL EXPOSURE DURING PREGNANCY: UNK)
     Route: 064
  63. PREDNISONE [Suspect]
     Active Substance: PREDNISONE
     Dosage: UNK
     Route: 064
  64. ARAVA [Suspect]
     Active Substance: LEFLUNOMIDE
     Dosage: UNK (MATERNAL EXPOSURE DURING PREGNANCY: 20 MG QD)
     Route: 064
  65. ATOMOXETINE HYDROCHLORIDE [Suspect]
     Active Substance: ATOMOXETINE HYDROCHLORIDE
     Dosage: UNK (MATERNAL EXPOSURE DURING PREGNANCY: 1 DOSAGE FORM)
     Route: 064
  66. ATOMOXETINE HYDROCHLORIDE [Suspect]
     Active Substance: ATOMOXETINE HYDROCHLORIDE
     Dosage: UNK (MATERNAL EXPOSURE DURING PREGNANCY: 1 DOSAGE FORM QD)
     Route: 064
  67. AZATHIOPRINE SODIUM [Suspect]
     Active Substance: AZATHIOPRINE SODIUM
     Dosage: UNK (MATERNAL EXPOSURE DURING PREGNANCY: UNK)
     Route: 064
  68. AZATHIOPRINE SODIUM [Suspect]
     Active Substance: AZATHIOPRINE SODIUM
     Dosage: UNK
     Route: 064
  69. BERINERT [Suspect]
     Active Substance: HUMAN C1-ESTERASE INHIBITOR
     Dosage: UNK (MATERNAL EXPOSURE DURING PREGNANCY: UNK)
     Route: 064
  70. BERINERT [Suspect]
     Active Substance: HUMAN C1-ESTERASE INHIBITOR
     Dosage: UNK
     Route: 064
  71. BOTULINUM TOXIN TYPE A [Suspect]
     Active Substance: BOTULINUM TOXIN TYPE A
     Dosage: POWDER FOR SOLUTION
     Route: 064
  72. BOTULINUM TOXIN TYPE A [Suspect]
     Active Substance: BOTULINUM TOXIN TYPE A
     Dosage: UNK (MATERNAL EXPOSURE DURING PREGNANCY: UNK)
     Route: 064
  73. BUTRANS [Suspect]
     Active Substance: BUPRENORPHINE
     Dosage: UNKUNK (MATERNAL EXPOSURE DURING PREGNANCY: UNK)
     Route: 064
  74. CALCIUM ASCORBATE [Suspect]
     Active Substance: CALCIUM ASCORBATE
     Dosage: UNK
     Route: 064
  75. CALCIUM CITRATE [Suspect]
     Active Substance: CALCIUM CITRATE
     Dosage: UNK (MATERNAL EXPOSURE DURING PREGNANCY: UNK)
     Route: 064
  76. CALCIUM GLUBIONATE [Suspect]
     Active Substance: CALCIUM GLUBIONATE
     Dosage: UNK
     Route: 064
  77. CANDESARTAN [Suspect]
     Active Substance: CANDESARTAN
     Dosage: UNK
     Route: 064
  78. CELEBREX [Suspect]
     Active Substance: CELECOXIB
     Dosage: UNK (MATERNAL EXPOSURE DURING PREGNANCY: UNK)
     Route: 064
  79. CELEBREX [Suspect]
     Active Substance: CELECOXIB
     Dosage: 2 DF, 1X/DAY
     Route: 064
  80. CELEBREX [Suspect]
     Active Substance: CELECOXIB
     Dosage: UNK (MATERNAL EXPOSURE DURING PREGNANCY: UNK, QD)
     Route: 064
  81. CETIRIZINE HYDROCHLORIDE [Suspect]
     Active Substance: CETIRIZINE HYDROCHLORIDE
     Dosage: UNK (MATERNAL EXPOSURE DURING PREGNANCY: UNK)
     Route: 064
  82. CETIRIZINE HYDROCHLORIDE [Suspect]
     Active Substance: CETIRIZINE HYDROCHLORIDE
     Dosage: UNK (MATERNAL EXPOSURE DURING PREGNANCY: 10 MG)
     Route: 064
  83. CETIRIZINE HYDROCHLORIDE [Suspect]
     Active Substance: CETIRIZINE HYDROCHLORIDE
     Dosage: UNK (MATERNAL EXPOSURE DURING PREGNANCY: 25 MG)
     Route: 064
  84. CETIRIZINE HYDROCHLORIDE [Suspect]
     Active Substance: CETIRIZINE HYDROCHLORIDE
     Dosage: UNK (MATERNAL EXPOSURE DURING PREGNANCY: 25 MG)
     Route: 064
  85. CETIRIZINE HYDROCHLORIDE [Suspect]
     Active Substance: CETIRIZINE HYDROCHLORIDE
     Dosage: UNK (MATERNAL EXPOSURE DURING PREGNANCY: 10 MG)
     Route: 064
  86. CHLORHEXIDINE GLUCONATE [Suspect]
     Active Substance: CHLORHEXIDINE GLUCONATE
     Dosage: UNK
     Route: 064
  87. CHOLECALCIFEROL [Suspect]
     Active Substance: CHOLECALCIFEROL
     Dosage: UNK
     Route: 064
  88. CIMZIA [Suspect]
     Active Substance: CERTOLIZUMAB PEGOL
     Dosage: UNK (MATERNAL EXPOSURE DURING PREGNANCY: UNK)
     Route: 064
  89. CIMZIA [Suspect]
     Active Substance: CERTOLIZUMAB PEGOL
     Dosage: UNK (MATERNAL EXPOSURE DURING PREGNANCY: 400 MG)
     Route: 064
  90. CIMZIA [Suspect]
     Active Substance: CERTOLIZUMAB PEGOL
     Dosage: UNK (MATERNAL EXPOSURE DURING PREGNANCY: 200 MG)
     Route: 064
  91. CORTISONE ACETATE [Suspect]
     Active Substance: CORTISONE ACETATE
     Dosage: UNK
     Route: 064
  92. CORTISONE ACETATE [Suspect]
     Active Substance: CORTISONE ACETATE
     Dosage: UNK (MATERNAL EXPOSURE DURING PREGNANCY: UNK)
     Route: 064
  93. CORTISONE ACETATE [Suspect]
     Active Substance: CORTISONE ACETATE
     Dosage: UNK (MATERNAL EXPOSURE DURING PREGNANCY: UNK)
     Route: 064
  94. CORTISONE ACETATE [Suspect]
     Active Substance: CORTISONE ACETATE
     Dosage: UNKUNK (MATERNAL EXPOSURE DURING PREGNANCY: 25 MG)
     Route: 064
  95. CORTISONE ACETATE [Suspect]
     Active Substance: CORTISONE ACETATE
     Dosage: UNK (MATERNAL EXPOSURE DURING PREGNANCY: 25 MG)
     Route: 064
  96. CORTISONE ACETATE [Suspect]
     Active Substance: CORTISONE ACETATE
     Dosage: UNK (MATERNAL EXPOSURE DURING PREGNANCY: 25 MG)
     Route: 064
  97. DESOXIMETASONE [Suspect]
     Active Substance: DESOXIMETASONE
     Dosage: UNK (MATERNAL EXPOSURE DURING PREGNANCY: 25 MG)
     Route: 064
  98. DESOXIMETASONE [Suspect]
     Active Substance: DESOXIMETASONE
     Dosage: UNK (MATERNAL EXPOSURE DURING PREGNANCY: 25 MG)
     Route: 064
  99. DESOXIMETASONE [Suspect]
     Active Substance: DESOXIMETASONE
     Dosage: UNK (MATERNAL EXPOSURE DURING PREGNANCY: UNK)
     Route: 064
  100. DOMPERIDONE MALEATE [Suspect]
     Active Substance: DOMPERIDONE MALEATE
     Dosage: UNK (MATERNAL EXPOSURE DURING PREGNANCY: UNK)
     Route: 064
  101. ERGOCALCIFEROL [Suspect]
     Active Substance: ERGOCALCIFEROL
     Dosage: UNK
     Route: 064
  102. FLUMETHASONE [Suspect]
     Active Substance: FLUMETHASONE
     Dosage: UNK
     Route: 064
  103. FLUMETHASONE PIVALATE [Suspect]
     Active Substance: FLUMETHASONE PIVALATE
     Dosage: UNK (MATERNAL EXPOSURE DURING PREGNANCY: UNK)
     Route: 064
  104. FLUMETHASONE PIVALATE [Suspect]
     Active Substance: FLUMETHASONE PIVALATE
     Dosage: UNK (MATERNAL EXPOSURE DURING PREGNANCY: UNK)
     Route: 064
  105. FOLIC ACID [Suspect]
     Active Substance: FOLIC ACID
     Dosage: UNK
     Route: 064
  106. FOLIC ACID [Suspect]
     Active Substance: FOLIC ACID
     Dosage: 25 MG
     Route: 064
  107. FOLIC ACID [Suspect]
     Active Substance: FOLIC ACID
     Dosage: 1 MG
     Route: 064
  108. FOLIC ACID [Suspect]
     Active Substance: FOLIC ACID
     Dosage: 0.5 MG
     Route: 064
  109. FOLIC ACID [Suspect]
     Active Substance: FOLIC ACID
     Dosage: 500 MG
     Route: 064
  110. FOLIC ACID [Suspect]
     Active Substance: FOLIC ACID
     Dosage: UNK
     Route: 064
  111. FOLIC ACID [Suspect]
     Active Substance: FOLIC ACID
     Dosage: 0.5 MG
     Route: 064
  112. FOLIC ACID [Suspect]
     Active Substance: FOLIC ACID
     Dosage: 15 MG
     Route: 064
  113. FOLIC ACID [Suspect]
     Active Substance: FOLIC ACID
     Dosage: 5 MG
     Route: 064
  114. FOLIC ACID [Suspect]
     Active Substance: FOLIC ACID
     Dosage: 1 MG
     Route: 064
  115. FOSAMAX [Suspect]
     Active Substance: ALENDRONATE SODIUM
     Dosage: UNK
     Route: 064
  116. FOSAMAX [Suspect]
     Active Substance: ALENDRONATE SODIUM
     Dosage: UNK
     Route: 064
  117. FOSAMAX [Suspect]
     Active Substance: ALENDRONATE SODIUM
     Dosage: UNK
     Route: 064
  118. HAIR KERATIN AMINO ACIDS GOLD COMPLEX [Suspect]
     Active Substance: HAIR KERATIN AMINO ACIDS GOLD COMPLEX
     Dosage: UNK
     Route: 064
  119. GOLD SODIUM THIOMALATE [Suspect]
     Active Substance: GOLD SODIUM THIOMALATE
     Dosage: UNK
     Route: 064
  120. GOLD SODIUM THIOMALATE [Suspect]
     Active Substance: GOLD SODIUM THIOMALATE
     Dosage: UNK
     Route: 064
  121. HUMIRA [Suspect]
     Active Substance: ADALIMUMAB
     Dosage: 40 MG
     Route: 064
  122. HUMIRA [Suspect]
     Active Substance: ADALIMUMAB
     Dosage: UNK
     Route: 064
  123. HUMIRA [Suspect]
     Active Substance: ADALIMUMAB
     Dosage: UNK
     Route: 064
  124. HYDROCORTISONE PROBUTATE [Suspect]
     Active Substance: HYDROCORTISONE PROBUTATE
     Dosage: UNK
     Route: 064
  125. HYDROXYCHLOROQUINE [Suspect]
     Active Substance: HYDROXYCHLOROQUINE
     Dosage: UNK (MATERNAL EXPOSURE DURING PREGNANCY: UNK)
     Route: 064
  126. HYDROXYCHLOROQUINE [Suspect]
     Active Substance: HYDROXYCHLOROQUINE
     Dosage: UNK (MATERNAL EXPOSURE DURING PREGNANCY: UNK)
     Route: 064
  127. HYDROXYCHLOROQUINE [Suspect]
     Active Substance: HYDROXYCHLOROQUINE
     Dosage: UNK (MATERNAL EXPOSURE DURING PREGNANCY: 400 MG QD)
     Route: 064
  128. HYDROXYCHLOROQUINE SULFATE [Suspect]
     Active Substance: HYDROXYCHLOROQUINE SULFATE
     Dosage: UNK
     Route: 064
  129. ISOPROPYL ALCOHOL [Suspect]
     Active Substance: ISOPROPYL ALCOHOL
     Dosage: 50 MG
     Route: 064
  130. ISOPROPYL ALCOHOL [Suspect]
     Active Substance: ISOPROPYL ALCOHOL
     Dosage: 50 MG
     Route: 064
  131. ISOPROPYL ALCOHOL [Suspect]
     Active Substance: ISOPROPYL ALCOHOL
     Dosage: 25 MG
     Route: 064
  132. LAMICTAL [Suspect]
     Active Substance: LAMOTRIGINE
     Dosage: UNK
     Route: 064
  133. LEFLUNOMIDE [Suspect]
     Active Substance: LEFLUNOMIDE
     Dosage: UNK
     Route: 064
  134. LEFLUNOMIDE [Suspect]
     Active Substance: LEFLUNOMIDE
     Dosage: UNK
     Route: 064
  135. LEFLUNOMIDE [Suspect]
     Active Substance: LEFLUNOMIDE
     Dosage: UNK
     Route: 064
  136. MAGNESIUM CITRATE [Suspect]
     Active Substance: MAGNESIUM CITRATE
     Dosage: UNK
     Route: 064
  137. METFORMIN HYDROCHLORIDE [Suspect]
     Active Substance: METFORMIN HYDROCHLORIDE
     Dosage: UNK
     Route: 064
  138. MINOCYCLINE [Suspect]
     Active Substance: MINOCYCLINE HYDROCHLORIDE
     Dosage: UNK
     Route: 064
  139. MINOCYCLINE HYDROCHLORIDE [Suspect]
     Active Substance: MINOCYCLINE HYDROCHLORIDE
     Dosage: UNK (MATERNAL EXPOSURE DURING PREGNANCY: UNK)
     Route: 064
  140. MINOCYCLINE HYDROCHLORIDE [Suspect]
     Active Substance: MINOCYCLINE HYDROCHLORIDE
     Dosage: UNK (MATERNAL EXPOSURE DURING PREGNANCY: UNK)
     Route: 064
  141. MYOCHRYSINE [Suspect]
     Active Substance: GOLD SODIUM THIOMALATE
     Dosage: UNK (MATERNAL EXPOSURE DURING PREGNANCY: UNK)
     Route: 064
  142. MYRBETRIQ [Suspect]
     Active Substance: MIRABEGRON
     Dosage: TABLET EXTENDED-RELEASE
     Route: 064
  143. NAPROXEN [Suspect]
     Active Substance: NAPROXEN
     Dosage: TABLET (ENTERIC- COATED)
     Route: 064
  144. NAPROXEN SODIUM [Suspect]
     Active Substance: NAPROXEN SODIUM
     Dosage: UNK (MATERNAL EXPOSURE DURING PREGNANCY: 500 MG)
     Route: 064
  145. NICOTINAMIDE [Suspect]
     Active Substance: NIACINAMIDE
     Dosage: UNK (MATERNAL EXPOSURE DURING PREGNANCY: 1 DOSAGE FORM)
     Route: 064
  146. NUCALA [Suspect]
     Active Substance: MEPOLIZUMAB
     Dosage: UNK (MATERNAL EXPOSURE DURING PREGNANCY: UNK)
     Route: 064
  147. ORENCIA [Suspect]
     Active Substance: ABATACEPT
     Dosage: UNK (MATERNAL EXPOSURE DURING PREGNANCY: 365 DOSAGE FORM)
     Route: 064
  148. OXYCODONE HYDROCHLORIDE [Suspect]
     Active Substance: OXYCODONE HYDROCHLORIDE
     Dosage: UNK
     Route: 064
  149. OXYCODONE TEREPHTHALATE [Suspect]
     Active Substance: OXYCODONE TEREPHTHALATE
     Dosage: UNK
     Route: 064
  150. PERIOGARD [Suspect]
     Active Substance: CHLORHEXIDINE GLUCONATE
     Dosage: UNK
     Route: 064
  151. PHENYLEPHRINE HYDROCHLORIDE [Suspect]
     Active Substance: PHENYLEPHRINE HYDROCHLORIDE
     Dosage: UNK
     Route: 064
  152. PHTHALYLSULFATHIAZOLE [Suspect]
     Active Substance: PHTHALYLSULFATHIAZOLE
     Dosage: UNK
     Route: 064
  153. PREDNISONE [Suspect]
     Active Substance: PREDNISONE
     Dosage: UNK (MATERNAL EXPOSURE DURING PREGNANCY: 50 MG QD)
     Route: 064
  154. PSEUDOEPHEDRINE HYDROCHLORIDE [Suspect]
     Active Substance: PSEUDOEPHEDRINE HYDROCHLORIDE
     Dosage: UNK
     Route: 064
  155. RAMIPRIL [Suspect]
     Active Substance: RAMIPRIL
     Dosage: UNK
     Route: 064
  156. CETIRIZINE HYDROCHLORIDE\PSEUDOEPHEDRINE HYDROCHLORIDE [Suspect]
     Active Substance: CETIRIZINE HYDROCHLORIDE\PSEUDOEPHEDRINE HYDROCHLORIDE
     Dosage: UNK (MATERNAL EXPOSURE DURING PREGNANCY: 10 MG)
     Route: 064
  157. CETIRIZINE HYDROCHLORIDE\PSEUDOEPHEDRINE HYDROCHLORIDE [Suspect]
     Active Substance: CETIRIZINE HYDROCHLORIDE\PSEUDOEPHEDRINE HYDROCHLORIDE
     Dosage: UNK (MATERNAL EXPOSURE DURING PREGNANCY: 25 MG)
     Route: 064
  158. CETIRIZINE HYDROCHLORIDE\PSEUDOEPHEDRINE HYDROCHLORIDE [Suspect]
     Active Substance: CETIRIZINE HYDROCHLORIDE\PSEUDOEPHEDRINE HYDROCHLORIDE
     Dosage: UNK (MATERNAL EXPOSURE DURING PREGNANCY: UNK)
     Route: 064
  159. SIMPONI [Suspect]
     Active Substance: GOLIMUMAB
     Dosage: UNK (MATERNAL EXPOSURE DURING PREGNANCY: 50 MG)
     Route: 064
  160. SIMPONI [Suspect]
     Active Substance: GOLIMUMAB
     Dosage: UNK (MATERNAL EXPOSURE DURING PREGNANCY: UNK)
     Route: 064
  161. TOPAMAX [Suspect]
     Active Substance: TOPIRAMATE
     Dosage: UNK (MATERNAL EXPOSURE DURING PREGNANCY: 25 MG QD)
     Route: 064
  162. TOPAMAX [Suspect]
     Active Substance: TOPIRAMATE
     Dosage: UNK (MATERNAL EXPOSURE DURING PREGNANCY: 25 MG)
     Route: 064
  163. TOPAMAX [Suspect]
     Active Substance: TOPIRAMATE
     Dosage: UNK (MATERNAL EXPOSURE DURING PREGNANCY: 3 MG)
     Route: 064
  164. VITAMIN C [Suspect]
     Active Substance: ASCORBIC ACID
     Dosage: UNK
     Route: 064
  165. ZINC [Suspect]
     Active Substance: ZINC
     Dosage: UNK
     Route: 064
  166. STELARA [Suspect]
     Active Substance: USTEKINUMAB
     Dosage: UNK
     Route: 064
  167. DICLOFENAC [Suspect]
     Active Substance: DICLOFENAC
     Dosage: UNK
     Route: 064
  168. METFORMIN HYDROCHLORIDE [Suspect]
     Active Substance: METFORMIN HYDROCHLORIDE
     Dosage: UNK
     Route: 064
  169. TRUXIMA [Suspect]
     Active Substance: RITUXIMAB-ABBS
     Dosage: UNK (SINGLE-DOSE VIAL) (CONCENTRATE FOR SOLUTION FOR INFUSION)
     Route: 064
  170. TRUXIMA [Suspect]
     Active Substance: RITUXIMAB-ABBS
     Dosage: UNK (SINGLE-DOSE VIAL) (CONCENTRATE FOR SOLUTION FOR INFUSION)
     Route: 064
  171. TRUXIMA [Suspect]
     Active Substance: RITUXIMAB-ABBS
     Dosage: UNK (SINGLE-DOSE VIAL) (CONCENTRATE FOR SOLUTION FOR INFUSION)
     Route: 064
  172. TRUXIMA [Suspect]
     Active Substance: RITUXIMAB-ABBS
     Dosage: UNK (SINGLE-DOSE VIAL) (CONCENTRATE FOR SOLUTION FOR INFUSION)
     Route: 064
  173. TRUXIMA [Suspect]
     Active Substance: RITUXIMAB-ABBS
     Dosage: UNK (SINGLE-DOSE VIAL) (SOLUTION INTRAVENOUS)
     Route: 064
  174. TRUXIMA [Suspect]
     Active Substance: RITUXIMAB-ABBS
     Dosage: UNK (SINGLE-DOSE VIAL) (CONCENTRATE FOR SOLUTION FOR INFUSION)
     Route: 064
  175. TRUXIMA [Suspect]
     Active Substance: RITUXIMAB-ABBS
     Dosage: UNK (SINGLE-DOSE VIAL) (CONCENTRATE FOR SOLUTION FOR INFUSION)
     Route: 064
  176. DICLOFENAC SODIUM [Suspect]
     Active Substance: DICLOFENAC SODIUM
     Dosage: UNK (MATERNAL EXPOSURE DURING PREGNANCY: UNK) (TRANSPLACENTAL)
     Route: 064
  177. ALENDRONATE SODIUM\CHOLECALCIFEROL [Suspect]
     Active Substance: ALENDRONATE SODIUM\CHOLECALCIFEROL
     Dosage: UNK (MATERNAL EXPOSURE DURING PREGNANCY: UNK) (TRANSPLACENTAL)
     Route: 064
  178. ACETAMINOPHEN\TRAMADOL HYDROCHLORIDE [Suspect]
     Active Substance: ACETAMINOPHEN\TRAMADOL HYDROCHLORIDE
     Dosage: UNK (MATERNAL EXPOSURE DURING PREGNANCY: UNK)
     Route: 064
  179. FLUMETHASONE\SALICYLIC ACID [Suspect]
     Active Substance: FLUMETHASONE\SALICYLIC ACID
     Dosage: UNK
     Route: 064
  180. NAPROXEN [Suspect]
     Active Substance: NAPROXEN
     Dosage: UNK (MATERNAL EXPOSURE DURING PREGNANCY: UNK)
     Route: 064
  181. REMICADE [Suspect]
     Active Substance: INFLIXIMAB
     Dosage: UNK (MATERNAL EXPOSURE DURING PREGNANCY: UNK)
     Route: 064
  182. REMICADE [Suspect]
     Active Substance: INFLIXIMAB
     Dosage: UNK (MATERNAL EXPOSURE DURING PREGNANCY: 400 MG)
     Route: 064
  183. REMICADE [Suspect]
     Active Substance: INFLIXIMAB
     Dosage: UNK (MATERNAL EXPOSURE DURING PREGNANCY: 500 MG)
     Route: 064
  184. REMICADE [Suspect]
     Active Substance: INFLIXIMAB
     Dosage: UNK (MATERNAL EXPOSURE DURING PREGNANCY: 300 MG)
     Route: 064

REACTIONS (2)
  - Maternal exposure during pregnancy [Unknown]
  - Congenital anomaly [Unknown]
